FAERS Safety Report 4353023-5 (Version None)
Quarter: 2004Q2

REPORT INFORMATION
  Report Type: 
  Country: None (occurrence: None)
  Receive Date: 20040430
  Receipt Date: 20040318
  Transmission Date: 20050107
  Serious: No
  Sender: FDA-Public Use
  Company Number: 205370

PATIENT
  Age: 53 Year
  Sex: Female
  Weight: 52.6 kg

DRUGS (6)
  1. XOLAIR (OMALIZUMAB) PWDR + SOLVENT, INJECTION SITE, 150 MG [Suspect]
     Indication: ASTHMA
     Dates: start: 20040301
  2. PAXIL [Concomitant]
  3. PEPCID [Concomitant]
  4. AMBIEN [Concomitant]
  5. SINGULAIR [Concomitant]
  6. ALBUTEROL INHALER (ALBUTEROL SULFATE, ALBUTEROL) [Concomitant]

REACTIONS (1)
  - HYPOAESTHESIA [None]
